FAERS Safety Report 4443432-8 (Version None)
Quarter: 2004Q3

REPORT INFORMATION
  Report Type: 
  Country: None (occurrence: None)
  Receive Date: 20040802
  Receipt Date: 20040615
  Transmission Date: 20050211
  Serious: No
  Sender: FDA-Public Use
  Company Number: 2004-117331-NL

PATIENT
  Age: 28 Year
  Sex: Female
  Weight: 71.4 kg

DRUGS (4)
  1. NUVARING [Suspect]
     Indication: MIGRAINE
     Dosage: DF DAILY VAGINAL
     Route: 067
     Dates: start: 20030101
  2. MONISTAT [Concomitant]
  3. TOPAMAX [Concomitant]
  4. WELLBUTRIN [Concomitant]

REACTIONS (2)
  - OLIGOMENORRHOEA [None]
  - VAGINAL MYCOSIS [None]
